FAERS Safety Report 9415028 (Version 1)
Quarter: 2013Q3

REPORT INFORMATION
  Report Type: Report from Study
  Country: CA (occurrence: CA)
  Receive Date: 20130723
  Receipt Date: 20130723
  Transmission Date: 20140515
  Serious: Yes (Other)
  Sender: FDA-Public Use
  Company Number: CA-JNJFOC-20130711086

PATIENT
  Age: 54 Year
  Sex: Female
  Weight: 97.4 kg

DRUGS (3)
  1. REMICADE [Suspect]
     Indication: CROHN^S DISEASE
     Route: 042
     Dates: start: 20130627, end: 20130711
  2. PREDNISONE [Concomitant]
     Dosage: FREQUENCY: 6 CO ID
     Route: 048
  3. MTX [Concomitant]
     Route: 058
     Dates: start: 20130208

REACTIONS (1)
  - Diverticulitis [Unknown]
